FAERS Safety Report 6543348-7 (Version None)
Quarter: 2010Q1

REPORT INFORMATION
  Report Type: 
  Country: None (occurrence: None)
  Receive Date: 20100120
  Receipt Date: 20100118
  Transmission Date: 20100710
  Serious: Yes (Hospitalization)
  Sender: FDA-Public Use
  Company Number: FR-SANOFI-AVENTIS-2010SA002807

PATIENT
  Age: 89 Year
  Sex: Female

DRUGS (4)
  1. PLAVIX [Suspect]
     Indication: DRUG USE FOR UNKNOWN INDICATION
     Route: 048
     Dates: start: 20061217, end: 20091201
  2. PRAVASTATIN SODIUM [Concomitant]
     Indication: DRUG USE FOR UNKNOWN INDICATION
     Route: 048
     Dates: start: 20061217
  3. COZAAR [Concomitant]
     Indication: DRUG USE FOR UNKNOWN INDICATION
     Route: 048
     Dates: start: 20061217
  4. FLUDEX [Concomitant]
     Indication: DRUG USE FOR UNKNOWN INDICATION
     Route: 048
     Dates: start: 20061217

REACTIONS (8)
  - CLUMSINESS [None]
  - EXTRADURAL HAEMATOMA [None]
  - FALL [None]
  - HAEMORRHAGIC ANAEMIA [None]
  - HEAD INJURY [None]
  - LOSS OF CONSCIOUSNESS [None]
  - NORMOCHROMIC NORMOCYTIC ANAEMIA [None]
  - RHABDOMYOLYSIS [None]
